FAERS Safety Report 7003506-4 (Version None)
Quarter: 2010Q3

REPORT INFORMATION
  Report Type: 
  Country: None (occurrence: None)
  Receive Date: 20100920
  Receipt Date: 20100916
  Transmission Date: 20110219
  Serious: Yes (Hospitalization)
  Sender: FDA-Public Use
  Company Number: HU-ABBOTT-10P-076-0671133-00

PATIENT
  Sex: Female
  Weight: 105 kg

DRUGS (2)
  1. ZEMPLAR [Suspect]
     Indication: HYPERPARATHYROIDISM SECONDARY
     Dosage: 5UG/1ML/AMPULE, 4 AMPULE/DIALYSIS
     Route: 042
     Dates: start: 20100112, end: 20100326
  2. CINACALCET HYDROCHLORIDE [Concomitant]
     Indication: HYPERPARATHYROIDISM SECONDARY
     Route: 048
     Dates: start: 20091101

REACTIONS (2)
  - CONFUSIONAL STATE [None]
  - HYPERTENSION [None]
